FAERS Safety Report 19232139 (Version 1)
Quarter: 2021Q2

REPORT INFORMATION
  Report Type: Spontaneous
  Country: US (occurrence: US)
  Receive Date: 20210507
  Receipt Date: 20210507
  Transmission Date: 20210717
  Serious: No
  Sender: FDA-Public Use
  Company Number: US-STRIDES ARCOLAB LIMITED-2021SP001553

PATIENT
  Age: 65 Year
  Sex: Male

DRUGS (6)
  1. GABAPENTIN. [Suspect]
     Active Substance: GABAPENTIN
     Indication: PRODUCT USED FOR UNKNOWN INDICATION
     Dosage: UNK
     Route: 065
  2. FENTANYL. [Concomitant]
     Active Substance: FENTANYL
     Indication: SCIATICA
     Dosage: UNK
     Route: 037
  3. ZICONOTIDE [Suspect]
     Active Substance: ZICONOTIDE
     Dosage: 1.2 MICROGRAM
     Route: 037
  4. MORPHINE [Suspect]
     Active Substance: MORPHINE
     Indication: PRODUCT USED FOR UNKNOWN INDICATION
     Dosage: UNK
     Route: 037
  5. ZICONOTIDE [Suspect]
     Active Substance: ZICONOTIDE
     Indication: SCIATICA
     Dosage: 1.1 MICROGRAM PER DAY
     Route: 037
  6. ZICONOTIDE [Suspect]
     Active Substance: ZICONOTIDE
     Dosage: 2.4 MICROGRAM PER DAY
     Route: 037

REACTIONS (5)
  - Arthralgia [Unknown]
  - Myalgia [Recovered/Resolved]
  - Night sweats [Unknown]
  - Confusional state [Recovered/Resolved]
  - Blood creatine phosphokinase increased [Recovered/Resolved]
